FAERS Safety Report 19201295 (Version 1)
Quarter: 2021Q2

REPORT INFORMATION
  Report Type: Spontaneous
  Country: US (occurrence: US)
  Receive Date: 20210430
  Receipt Date: 20210430
  Transmission Date: 20210717
  Serious: No
  Sender: FDA-Public Use
  Company Number: US-MERZ PHARMACEUTICALS GMBH-21-01446

PATIENT
  Sex: Male

DRUGS (4)
  1. HUMIRA [Concomitant]
     Active Substance: ADALIMUMAB
  2. XEOMIN [Suspect]
     Active Substance: INCOBOTULINUMTOXINA
     Indication: SKIN WRINKLING
     Dates: start: 20210407, end: 20210407
  3. BOTOX [Concomitant]
     Active Substance: ONABOTULINUMTOXINA
  4. DYSPORT [Concomitant]
     Active Substance: ABOBOTULINUMTOXINA

REACTIONS (3)
  - Injection site swelling [Unknown]
  - Corneal abrasion [Unknown]
  - Dry eye [Unknown]

NARRATIVE: CASE EVENT DATE: 20210409
